FAERS Safety Report 11828403 (Version 1)
Quarter: 2015Q4

REPORT INFORMATION
  Report Type: Spontaneous
  Country: US (occurrence: US)
  Receive Date: 20151211
  Receipt Date: 20151211
  Transmission Date: 20160305
  Serious: No
  Sender: FDA-Public Use
  Company Number: US-BAUSCH-BL-2015-003390

PATIENT
  Sex: Female

DRUGS (1)
  1. XENAZINE [Suspect]
     Active Substance: TETRABENAZINE
     Indication: HUNTINGTON^S DISEASE
     Route: 048
     Dates: start: 20150206

REACTIONS (9)
  - Agitation [Unknown]
  - Restlessness [Unknown]
  - Drug administration error [Unknown]
  - Drug ineffective [Unknown]
  - Irritability [Unknown]
  - Fatigue [Unknown]
  - Mood altered [Unknown]
  - Trismus [Unknown]
  - Lethargy [Unknown]

NARRATIVE: CASE EVENT DATE: 20150206
